FAERS Safety Report 12388304 (Version 1)
Quarter: 2016Q2

REPORT INFORMATION
  Report Type: Report from Study
  Country: NG (occurrence: NG)
  Receive Date: 20160520
  Receipt Date: 20160520
  Transmission Date: 20160815
  Serious: Yes (Death)
  Sender: FDA-Public Use
  Company Number: PHHY2015NG172537

PATIENT
  Age: 25 Year
  Sex: Male

DRUGS (1)
  1. GLIVEC [Suspect]
     Active Substance: IMATINIB MESYLATE
     Indication: CHRONIC MYELOID LEUKAEMIA
     Dosage: 400 MG, UNK
     Route: 065
     Dates: start: 20100615

REACTIONS (3)
  - Drug resistance [Unknown]
  - White blood cell count increased [Unknown]
  - Death [Fatal]

NARRATIVE: CASE EVENT DATE: 20160306
